FAERS Safety Report 18330590 (Version 1)
Quarter: 2020Q3

REPORT INFORMATION
  Report Type: Spontaneous
  Country: DE (occurrence: DE)
  Receive Date: 20200930
  Receipt Date: 20200930
  Transmission Date: 20201103
  Serious: Yes (Hospitalization)
  Sender: FDA-Public Use
  Company Number: DE-MYLANLABS-2020M1081770

PATIENT
  Age: 79 Year
  Sex: Female

DRUGS (15)
  1. RAMIPRIL. [Concomitant]
     Active Substance: RAMIPRIL
     Dosage: 5 MILLIGRAM, BID,1?0?1?0
     Route: 048
  2. ISOPHANE INSULIN [Concomitant]
     Active Substance: INSULIN NOS
     Dosage: 32 INTERNATIONAL UNIT, QD,1?0?0?0
     Route: 058
  3. CALCIUM                            /07357001/ [Concomitant]
     Dosage: 500 MILLIGRAM, QD,1?0?0?0
     Route: 048
  4. SPIRIVA [Concomitant]
     Active Substance: TIOTROPIUM BROMIDE MONOHYDRATE
     Dosage: 18 MICROGRAM, QDDOSIERAEROSOL,1?0?0?0
     Route: 055
  5. CLOBETASOL [Concomitant]
     Active Substance: CLOBETASOL
     Dosage: NK MG, 1X, SALBE
     Route: 061
  6. METOPROLOL. [Suspect]
     Active Substance: METOPROLOL
     Indication: PRODUCT USED FOR UNKNOWN INDICATION
     Dosage: 100 MILLIGRAM, BID,RETARD?TABLETTEN 1?0?1?0
     Route: 048
  7. NITRENDIPIN [Concomitant]
     Active Substance: NITRENDIPINE
     Dosage: 20 MILLIGRAM, BID,1?0?1?0
     Route: 048
  8. FUROSEMID                          /00032601/ [Concomitant]
     Active Substance: FUROSEMIDE
     Dosage: 40 MILLIGRAM, BID,1?1?0?0
     Route: 048
  9. SITAGLIPTIN [Concomitant]
     Active Substance: SITAGLIPTIN
     Dosage: 25 MILLIGRAM, QD,1?0?0?0
     Route: 048
  10. AQUAPHOR (XIPAMIDE) [Concomitant]
     Active Substance: XIPAMIDE
     Dosage: 10 MILLIGRAM, QD,1?0?0?0
     Route: 048
  11. ACETYLSALICYLIC ACID [Concomitant]
     Active Substance: ASPIRIN
     Dosage: 100 MILLIGRAM, QD,0?1?0?0
     Route: 048
  12. COLECALCIFEROL [Concomitant]
     Active Substance: CHOLECALCIFEROL
     Dosage: 1000 INTERNATIONAL UNIT, QD,1?0?0?0
     Route: 048
  13. PANTOPRAZOL                        /01263201/ [Concomitant]
     Active Substance: PANTOPRAZOLE
     Dosage: 40 MILLIGRAM, QD,0?0?1?0
     Route: 048
  14. METAMIZOL                          /06276701/ [Concomitant]
     Active Substance: METAMIZOLE
     Dosage: 500 MILLIGRAM 1?1?1?1, TABLET
     Route: 048
  15. CLONIDINE. [Concomitant]
     Active Substance: CLONIDINE
     Dosage: 75 MILLIGRAM, BID,1?0?1?0
     Route: 048

REACTIONS (3)
  - Necrosis [Recovering/Resolving]
  - Impaired healing [Recovering/Resolving]
  - Wound [Recovering/Resolving]
